FAERS Safety Report 6232672-3 (Version None)
Quarter: 2009Q2

REPORT INFORMATION
  Report Type: 
  Country: None (occurrence: None)
  Receive Date: 20090617
  Receipt Date: 20090528
  Transmission Date: 20091009
  Serious: Yes (Other)
  Sender: FDA-Public Use
  Company Number: ES-PFIZER INC-2009224650

PATIENT
  Age: 73 Year

DRUGS (2)
  1. AMLODIPINE BESYLATE [Suspect]
     Indication: CARDIAC VALVE DISEASE
     Dosage: 2.5 MG, 3X/DAY
     Route: 048
     Dates: start: 20090211, end: 20090518
  2. OMEPRAZOL [Suspect]
     Dosage: 20 MG, 1X/DAY
     Route: 048
     Dates: start: 20090211, end: 20090518

REACTIONS (2)
  - BREAST PAIN [None]
  - GYNAECOMASTIA [None]
